FAERS Safety Report 25385777 (Version 1)
Quarter: 2025Q2

REPORT INFORMATION
  Report Type: Spontaneous
  Country: US (occurrence: None)
  Receive Date: 20250531
  Receipt Date: 20250531
  Transmission Date: 20250716
  Serious: Yes (unspecified)
  Sender: FDA-CTU
  Company Number: None

PATIENT
  Age: 44 Year
  Sex: Female
  Weight: 72 kg

DRUGS (7)
  1. CETIRIZINE [Suspect]
     Active Substance: CETIRIZINE HYDROCHLORIDE
     Indication: Rhinorrhoea
     Dosage: OTHER QUANTITY : 1 TABLET(S);?FREQUENCY : AT BEDTIME;?
     Route: 048
  2. CETIRIZINE [Suspect]
     Active Substance: CETIRIZINE HYDROCHLORIDE
     Indication: Paranasal sinus discomfort
  3. VALTREX [Concomitant]
     Active Substance: VALACYCLOVIR HYDROCHLORIDE
  4. VITEX [Concomitant]
  5. VITAMIN D3K2 [Concomitant]
  6. IRON [Concomitant]
     Active Substance: IRON
  7. VITAMIN C [Suspect]
     Active Substance: ASCORBIC ACID

REACTIONS (2)
  - Mast cell activation syndrome [None]
  - Malassezia infection [None]

NARRATIVE: CASE EVENT DATE: 20221001
